FAERS Safety Report 7706619-4 (Version None)
Quarter: 2011Q3

REPORT INFORMATION
  Report Type: 
  Country: None (occurrence: None)
  Receive Date: 20110824
  Receipt Date: 20110817
  Transmission Date: 20111222
  Serious: Yes (Hospitalization)
  Sender: FDA-Public Use
  Company Number: DE-PFIZER INC-DE-WYE-G05069509

PATIENT
  Age: 16 Year
  Sex: Female
  Weight: 50 kg

DRUGS (2)
  1. PARACETAMOL [Suspect]
     Dosage: 10 TABLETS (OVERDOSE AMOUNT 5000 MG)
     Route: 048
     Dates: start: 20091203, end: 20091203
  2. LEVONORGESTREL + ETHINYL ESTRADIOL [Suspect]
     Dosage: 42 TABLETS (OVERDOSE AMOUNT 4.2 MG LEVONORGESTREL/0.8 4 MG ETHINYLESTRADIOL)
     Route: 048
     Dates: start: 20091203, end: 20091203

REACTIONS (5)
  - SUICIDE ATTEMPT [None]
  - VOMITING [None]
  - INTENTIONAL OVERDOSE [None]
  - NAUSEA [None]
  - ABDOMINAL PAIN [None]
